FAERS Safety Report 18903101 (Version 1)
Quarter: 2021Q1

REPORT INFORMATION
  Report Type: Spontaneous
  Country: CN (occurrence: CN)
  Receive Date: 20210216
  Receipt Date: 20210216
  Transmission Date: 20210420
  Serious: Yes (Other)
  Sender: FDA-Public Use
  Company Number: CN-BAXTER-2021BAX002778

PATIENT
  Age: 17 Year
  Sex: Female
  Weight: 38.3 kg

DRUGS (8)
  1. XI AI KE [Suspect]
     Active Substance: VINDESINE SULFATE
     Dosage: XI AI KE 3.86 MG + 0.9% SODIUM CHLORIDE 20ML
     Route: 040
     Dates: start: 20210119, end: 20210119
  2. 5% GLUCOSE AND 0.9% SODIUM CHLORIDE INJECTION [Suspect]
     Active Substance: DEXTROSE\SODIUM CHLORIDE
     Indication: MEDICATION DILUTION
     Dosage: ENDOXAN 0.77G + (4:1) GLUCOSE AND SODIUM CHLORIDE INJECTION 250ML
     Route: 041
     Dates: start: 20210112, end: 20210112
  3. 0.9% SODIUM CHLORIDE INJECTION [Suspect]
     Active Substance: SODIUM CHLORIDE
     Dosage: XI AI KE 3.86 MG + 0.9% SODIUM CHLORIDE 20ML
     Route: 040
     Dates: start: 20210112, end: 20210112
  4. 0.9% SODIUM CHLORIDE INJECTION [Suspect]
     Active Substance: SODIUM CHLORIDE
     Dosage: XI AI KE 3.86 MG + 0.9% SODIUM CHLORIDE 20ML
     Route: 040
     Dates: start: 20210119, end: 20210119
  5. 0.9% SODIUM CHLORIDE INJECTION [Suspect]
     Active Substance: SODIUM CHLORIDE
     Indication: MEDICATION DILUTION
     Dosage: FA MA XIN 38.6 MG + 0.9% SODIUM CHLORIDE 250ML
     Route: 041
     Dates: start: 20210112, end: 20210113
  6. FA MA XIN [EPIRUBICIN HYDROCHLORIDE] [Suspect]
     Active Substance: EPIRUBICIN HYDROCHLORIDE
     Indication: ACUTE LYMPHOCYTIC LEUKAEMIA
     Dosage: FA MA XIN 38.6 MG + 0.9% SODIUM CHLORIDE 250ML
     Route: 041
     Dates: start: 20210112, end: 20210113
  7. XI AI KE [Suspect]
     Active Substance: VINDESINE SULFATE
     Indication: ACUTE LYMPHOCYTIC LEUKAEMIA
     Dosage: XI AI KE 3.86 MG + 0.9% SODIUM CHLORIDE 20ML
     Route: 040
     Dates: start: 20210112, end: 20210112
  8. ENDOXAN [Suspect]
     Active Substance: CYCLOPHOSPHAMIDE
     Indication: ACUTE LYMPHOCYTIC LEUKAEMIA
     Dosage: ENDOXAN 0.77G + (4:1) GLUCOSE AND SODIUM CHLORIDE INJECTION 250 ML
     Route: 041
     Dates: start: 20210112, end: 20210112

REACTIONS (1)
  - Myelosuppression [Recovering/Resolving]

NARRATIVE: CASE EVENT DATE: 20210124
